FAERS Safety Report 16264785 (Version 5)
Quarter: 2019Q4

REPORT INFORMATION
  Report Type: Spontaneous
  Country: JP (occurrence: JP)
  Receive Date: 20190502
  Receipt Date: 20191031
  Transmission Date: 20200122
  Serious: Yes (Life-Threatening, Hospitalization, Other)
  Sender: FDA-Public Use
  Company Number: JP-ASTRAZENECA-2019SE42820

PATIENT
  Age: 29075 Day
  Sex: Female
  Weight: 45 kg

DRUGS (6)
  1. METHYLPREDNISOLONE. [Suspect]
     Active Substance: METHYLPREDNISOLONE
     Indication: PULMONARY TOXICITY
     Dosage: 1.0G UNKNOWN
     Route: 065
     Dates: start: 20190219
  2. BAKTAR [Suspect]
     Active Substance: SULFAMETHOXAZOLE\TRIMETHOPRIM
     Dosage: DOSE UNKNOWN
     Route: 065
  3. TAGRISSO [Suspect]
     Active Substance: OSIMERTINIB
     Indication: NON-SMALL CELL LUNG CANCER
     Route: 048
     Dates: start: 20181215, end: 20181225
  4. TAGRISSO [Suspect]
     Active Substance: OSIMERTINIB
     Indication: NON-SMALL CELL LUNG CANCER
     Route: 048
     Dates: start: 20190124, end: 20190217
  5. PREDONINE [Suspect]
     Active Substance: PREDNISOLONE
     Indication: PULMONARY TOXICITY
     Dosage: 20.0MG UNKNOWN
     Route: 065
     Dates: start: 20190220
  6. LIXIANA [Concomitant]
     Active Substance: EDOXABAN TOSYLATE
     Indication: VENOUS THROMBOSIS
     Route: 048
     Dates: start: 20181221, end: 20190306

REACTIONS (9)
  - Pulmonary toxicity [Not Recovered/Not Resolved]
  - Renal disorder [Unknown]
  - Hyponatraemia [Unknown]
  - Cardiac failure [Recovering/Resolving]
  - Acute respiratory failure [Unknown]
  - Pulmonary nocardiosis [Not Recovered/Not Resolved]
  - Pulmonary alveolar haemorrhage [Unknown]
  - Cardiac failure congestive [Unknown]
  - Venous thrombosis [Recovering/Resolving]

NARRATIVE: CASE EVENT DATE: 20181221
